FAERS Safety Report 14258866 (Version 1)
Quarter: 2017Q4

REPORT INFORMATION
  Report Type: Spontaneous
  Country: US (occurrence: None)
  Receive Date: 20171207
  Receipt Date: 20171207
  Transmission Date: 20180321
  Serious: Yes (Hospitalization)
  Sender: FDA-Public Use
  Company Number: None

PATIENT
  Age: 73 Year
  Sex: Female
  Weight: 73.9 kg

DRUGS (2)
  1. CISPLATIN. [Suspect]
     Active Substance: CISPLATIN
     Dates: end: 20171026
  2. GEMCITABINE HYDROCHLORIDE. [Suspect]
     Active Substance: GEMCITABINE HYDROCHLORIDE
     Dates: end: 20171026

REACTIONS (9)
  - Hypoxia [None]
  - Pulmonary embolism [None]
  - Hypotension [None]
  - Perihepatic abscess [None]
  - Supraventricular tachycardia [None]
  - Heart rate irregular [None]
  - Dyspnoea [None]
  - Refusal of treatment by patient [None]
  - Deep vein thrombosis [None]

NARRATIVE: CASE EVENT DATE: 20171128
